FAERS Safety Report 7010919-3 (Version None)
Quarter: 2010Q3

REPORT INFORMATION
  Report Type: 
  Country: None (occurrence: None)
  Receive Date: 20100923
  Receipt Date: 20100923
  Transmission Date: 20110219
  Serious: Yes (Other)
  Sender: FDA-Public Use
  Company Number: None

PATIENT
  Sex: Male

DRUGS (1)
  1. CYANOCOBALAMIN [Suspect]
     Indication: VITAMIN B12 DEFICIENCY
     Dosage: 1ML SQ BIWEEKLY
     Route: 058
     Dates: start: 20100826

REACTIONS (1)
  - INJECTION SITE HYPERSENSITIVITY [None]
